FAERS Safety Report 6505192-6 (Version None)
Quarter: 2009Q4

REPORT INFORMATION
  Report Type: 
  Country: None (occurrence: None)
  Receive Date: 20091218
  Receipt Date: 20091207
  Transmission Date: 20100525
  Serious: Yes (Other)
  Sender: FDA-Public Use
  Company Number: CH-WYE-G03077409

PATIENT
  Age: 29 Year
  Sex: Female
  Weight: 82 kg

DRUGS (4)
  1. EFFEXOR XR [Suspect]
     Indication: DEPRESSION
     Dates: start: 20031101, end: 20081201
  2. EFFEXOR XR [Suspect]
     Dates: start: 20081202, end: 20081231
  3. EFFEXOR XR [Suspect]
     Dates: start: 20090101
  4. FOLIC ACID [Concomitant]

REACTIONS (5)
  - DRUG EFFECT DECREASED [None]
  - DRUG EXPOSURE DURING PREGNANCY [None]
  - GALACTORRHOEA [None]
  - HYPERPROLACTINAEMIA [None]
  - PREMATURE RUPTURE OF MEMBRANES [None]
